FAERS Safety Report 10269985 (Version 1)
Quarter: 2014Q2

REPORT INFORMATION
  Report Type: Spontaneous
  Country: GB (occurrence: None)
  Receive Date: 20140625
  Receipt Date: 20140625
  Transmission Date: 20141212
  Serious: Yes (Hospitalization)
  Sender: FDA-Public Use
  Company Number: FK201402494

PATIENT
  Age: 81 Year
  Sex: Male
  Weight: 106.9 kg

DRUGS (5)
  1. GEMCITABINE [Suspect]
     Indication: NON-HODGKIN^S LYMPHOMA
     Dosage: 1100 MG, 1 IN 3 WK, INTRAVENOUS
     Route: 042
     Dates: start: 20110902
  2. DEXAMETHASONE [Suspect]
     Indication: NON-HODGKIN^S LYMPHOMA
     Dosage: 40 MG, 1 IN 3 WK, ORAL
     Route: 048
     Dates: start: 20110901
  3. CISPLATIN (CISPLATIN) [Concomitant]
  4. RITUXIMAB (RITUXIMAB) [Concomitant]
  5. INOTUZUMAB OZOGAMICIN (INOTUZUMAB OXOGAMICIN) [Concomitant]

REACTIONS (2)
  - Neutropenic sepsis [None]
  - Lobar pneumonia [None]
